FAERS Safety Report 6125902-X (Version None)
Quarter: 2009Q1

REPORT INFORMATION
  Report Type: 
  Country: None (occurrence: None)
  Receive Date: 20090320
  Receipt Date: 20090318
  Transmission Date: 20090719
  Serious: Yes (Hospitalization, Other)
  Sender: FDA-Public Use
  Company Number: US-BRISTOL-MYERS SQUIBB COMPANY-14465520

PATIENT
  Age: 78 Year
  Sex: Female
  Weight: 70 kg

DRUGS (8)
  1. GLUCOPHAGE [Suspect]
     Indication: DIABETES MELLITUS
     Dosage: 750MG TWICE A DAY FROM UNK-20DEC08 AND INCREASED TO 1000MG 2/D FROM 21DEC08-ONG
  2. MICRONASE [Suspect]
     Indication: TYPE 2 DIABETES MELLITUS
     Dosage: TWO 5MG TABS IN MOR AND TWO 5MG TABLETS AT NIGHT, TOTAL DAILY DOSE-20 MG.
     Dates: end: 20081223
  3. AVANDIA [Suspect]
     Indication: DIABETES MELLITUS
  4. GLYBURIDE [Suspect]
     Indication: DIABETES MELLITUS
  5. GLIPIZIDE [Suspect]
     Indication: TYPE 2 DIABETES MELLITUS
     Dosage: TWO 5MG TABS IN MOR AND TWO 5MG TABLETS AT NIGHT, TOTAL DAILY DOSE-20 MG.
     Dates: start: 20081224, end: 20090226
  6. FOLIC ACID [Concomitant]
  7. ASPIRIN [Concomitant]
  8. POTASSIUM CHLORIDE [Concomitant]

REACTIONS (12)
  - ASTHENIA [None]
  - BLOOD GLUCOSE INCREASED [None]
  - BODY HEIGHT DECREASED [None]
  - CARDIAC DISORDER [None]
  - DIARRHOEA [None]
  - DIZZINESS [None]
  - FLATULENCE [None]
  - GLYCOSYLATED HAEMOGLOBIN INCREASED [None]
  - HYPOGLYCAEMIA [None]
  - PNEUMONIA [None]
  - TREMOR [None]
  - VISUAL IMPAIRMENT [None]
